FAERS Safety Report 8316023 (Version 4)
Quarter: 2013Q3

REPORT INFORMATION
  Report Type: Spontaneous
  Country: US (occurrence: US)
  Receive Date: 20111229
  Receipt Date: 20130820
  Transmission Date: 20140515
  Serious: Yes (Hospitalization)
  Sender: FDA-Public Use
  Company Number: US-GLAXOSMITHKLINE-A0861775A

PATIENT
  Age: 51 Year
  Sex: Female

DRUGS (4)
  1. AVANDIA [Suspect]
     Indication: DIABETES MELLITUS
     Dosage: 8MG PER DAY
     Route: 048
     Dates: start: 2000, end: 2008
  2. DIOVAN [Concomitant]
  3. PROTONIX [Concomitant]
  4. ALBUTEROL [Concomitant]

REACTIONS (4)
  - Cerebrovascular accident [Not Recovered/Not Resolved]
  - Convulsion [Unknown]
  - Renal failure [Unknown]
  - Angina pectoris [Unknown]
